FAERS Safety Report 6265399-2 (Version None)
Quarter: 2009Q3

REPORT INFORMATION
  Report Type: 
  Country: None (occurrence: None)
  Receive Date: 20090713
  Receipt Date: 20090706
  Transmission Date: 20100115
  Serious: Yes (Hospitalization)
  Sender: FDA-Public Use
  Company Number: FR-BAYER-200925021GPV

PATIENT
  Age: 26 Year
  Sex: Female

DRUGS (11)
  1. CIFLOX [Suspect]
     Indication: PYOTHORAX
     Dosage: UNIT DOSE: 400 MG
     Route: 042
     Dates: start: 20090215, end: 20090226
  2. VANCOMYCIN SANDOZ [Suspect]
     Indication: PYOTHORAX
     Dosage: NOS
     Route: 042
     Dates: start: 20090203, end: 20090226
  3. TIENAM [Suspect]
     Indication: PYOTHORAX
     Dosage: UNIT DOSE: 1 G
     Route: 042
     Dates: start: 20090215, end: 20090226
  4. TRIFLUCAN [Suspect]
     Indication: PYOTHORAX
     Route: 042
     Dates: start: 20090215, end: 20090225
  5. MIDAZOLAM HCL [Concomitant]
     Indication: DRUG USE FOR UNKNOWN INDICATION
     Route: 065
  6. URBANYL [Concomitant]
     Indication: DRUG USE FOR UNKNOWN INDICATION
     Route: 065
  7. KEPPRA [Concomitant]
     Indication: DRUG USE FOR UNKNOWN INDICATION
     Route: 065
  8. ACETAMINOPHEN [Concomitant]
     Indication: DRUG USE FOR UNKNOWN INDICATION
     Route: 065
  9. INIPOMP [Concomitant]
     Indication: DRUG USE FOR UNKNOWN INDICATION
     Route: 065
  10. LOVENOX [Concomitant]
     Indication: DRUG USE FOR UNKNOWN INDICATION
     Route: 065
  11. LASIX [Concomitant]
     Indication: DRUG USE FOR UNKNOWN INDICATION
     Route: 065

REACTIONS (2)
  - BLISTER [None]
  - RASH MACULAR [None]
